FAERS Safety Report 8226468-0 (Version None)
Quarter: 2012Q1

REPORT INFORMATION
  Report Type: 
  Country: None (occurrence: None)
  Receive Date: 20120322
  Receipt Date: 20120312
  Transmission Date: 20120608
  Serious: Yes (Other)
  Sender: FDA-Public Use
  Company Number: US-ASTRAZENECA-2012SE17131

PATIENT
  Age: 63 Year
  Sex: Female
  Weight: 86.6 kg

DRUGS (15)
  1. NEXIUM [Suspect]
     Indication: GASTROOESOPHAGEAL REFLUX DISEASE
     Route: 048
  2. NEXIUM [Suspect]
     Indication: OESOPHAGITIS
     Route: 048
  3. VENTOLIN [Concomitant]
     Indication: CHRONIC OBSTRUCTIVE PULMONARY DISEASE
     Dosage: AS NEEDED
  4. UNSPECIFIED SULFA MEDICATIONS [Suspect]
     Route: 065
  5. DEMEROL [Concomitant]
     Indication: MIGRAINE
     Dosage: OCCASIONALLY
  6. XANAX [Concomitant]
     Dosage: 1-2 MG AS NEEDED
  7. UNSPECIFIED MEDICATIONS [Suspect]
     Indication: OESOPHAGITIS
     Route: 065
  8. ADVAIR DISKUS 100/50 [Concomitant]
     Indication: CHRONIC OBSTRUCTIVE PULMONARY DISEASE
     Dosage: TWO TIMES A DAY
  9. HORMONE SHOTS [Concomitant]
     Indication: HORMONE REPLACEMENT THERAPY
  10. PROPRANOLOL [Suspect]
     Indication: MIGRAINE
     Route: 065
     Dates: start: 20120201, end: 20120201
  11. CRESTOR [Suspect]
     Indication: BLOOD CHOLESTEROL ABNORMAL
     Route: 048
  12. UNSPECIFIED ANTI INFLAMMATORY MEDICATIONS [Suspect]
     Route: 065
  13. SPIRIVA [Concomitant]
     Indication: CHRONIC OBSTRUCTIVE PULMONARY DISEASE
     Dosage: DAILY AT NIGHT
  14. UNSPECIFIED MEDICATIONS [Suspect]
     Indication: GASTROOESOPHAGEAL REFLUX DISEASE
     Route: 065
  15. NORCO [Concomitant]
     Indication: ARTHROPATHY
     Dosage: 4-8 TIMES A DAY AS NEEDED

REACTIONS (9)
  - CHRONIC OBSTRUCTIVE PULMONARY DISEASE [None]
  - INTERVERTEBRAL DISC PROTRUSION [None]
  - DRUG HYPERSENSITIVITY [None]
  - GASTRITIS [None]
  - INSOMNIA [None]
  - DYSPNOEA [None]
  - ARTHROPATHY [None]
  - DRUG INTOLERANCE [None]
  - PAIN [None]
